FAERS Safety Report 6988698-5 (Version None)
Quarter: 2010Q3

REPORT INFORMATION
  Report Type: 
  Country: None (occurrence: None)
  Receive Date: 20100916
  Receipt Date: 20100908
  Transmission Date: 20110219
  Serious: Yes (Hospitalization, Other)
  Sender: FDA-Public Use
  Company Number: US-ELI_LILLY_AND_COMPANY-US201008002644

PATIENT
  Sex: Female

DRUGS (18)
  1. HUMULIN 70/30 [Suspect]
     Indication: DIABETES MELLITUS
     Dosage: 35 U, EACH MORNING
  2. HUMULIN 70/30 [Suspect]
     Dosage: 12 U, EACH EVENING
  3. NOVOLIN R [Concomitant]
     Dosage: UNK, AS NEEDED
  4. PLAVIX [Concomitant]
     Dosage: 75 MG, DAILY (1/D)
  5. PREDNISONE [Concomitant]
     Dosage: 5 MG, DAILY (1/D)
  6. ASPIRIN [Concomitant]
     Dosage: 81 MG, DAILY (1/D)
  7. CLONIDINE [Concomitant]
     Dosage: 0.1 MG, DAILY (1/D)
  8. FOSAMAX [Concomitant]
     Dosage: UNK, WEEKLY (1/W)
  9. HYDROCODONE BITARTRATE AND ACETAMINOPHEN [Concomitant]
     Indication: PAIN
     Dosage: UNK, AS NEEDED
  10. IMODIUM [Concomitant]
     Indication: DIARRHOEA
     Dosage: 4 MG, AS NEEDED
  11. LIPITOR [Concomitant]
     Dosage: 10 MG, DAILY (1/D)
  12. METOPROLOL SUCCINATE [Concomitant]
     Dosage: 25 MG, DAILY (1/D)
  13. MYFORTIC [Concomitant]
     Dosage: 360 MG, 2/D
  14. PRILOSEC [Concomitant]
     Dosage: 20 MG, DAILY (1/D)
  15. PROGRAF [Concomitant]
     Dosage: UNK, 2/D
  16. PROMETHAZINE [Concomitant]
     Indication: NAUSEA
     Dosage: UNK, 3/D
  17. TEMAZEPAM [Concomitant]
     Indication: INSOMNIA
     Dosage: 30 MG, AS NEEDED
  18. XANAX [Concomitant]
     Indication: ANXIETY
     Dosage: 0.25 MG, AS NEEDED

REACTIONS (13)
  - ACUTE MYOCARDIAL INFARCTION [None]
  - BLOOD GLUCOSE INCREASED [None]
  - CORONARY ARTERY DISEASE [None]
  - DRUG INEFFECTIVE [None]
  - HYPOTENSION [None]
  - HYPOVOLAEMIA [None]
  - NAUSEA [None]
  - RENAL FAILURE ACUTE [None]
  - RENAL FAILURE CHRONIC [None]
  - URINARY TRACT INFECTION [None]
  - URINARY TRACT INFECTION BACTERIAL [None]
  - VISUAL ACUITY REDUCED [None]
  - VOMITING [None]
